FAERS Safety Report 15118352 (Version 1)
Quarter: 2018Q3

REPORT INFORMATION
  Report Type: Spontaneous
  Country: DK (occurrence: DK)
  Receive Date: 20180708
  Receipt Date: 20180708
  Transmission Date: 20181010
  Serious: Yes (Death, Life-Threatening)
  Sender: FDA-Public Use
  Company Number: DK-NOVOPROD-608675

PATIENT
  Age: 81 Year
  Sex: Male

DRUGS (3)
  1. CONTALGIN [Suspect]
     Active Substance: MORPHINE SULFATE
     Indication: PAIN
     Dosage: 30 MG, QD (FOR THE NIGHT)
     Route: 048
     Dates: start: 20180529
  2. CONTALGIN [Suspect]
     Active Substance: MORPHINE SULFATE
     Dosage: DOSE INCREASED A LITLLE IN THE EVENING UP TO THE CAUSE
     Route: 048
  3. LEVEMIR [Suspect]
     Active Substance: INSULIN DETEMIR
     Indication: TYPE 2 DIABETES MELLITUS
     Dosage: DOSAGE TEXT: STRENGTH: 100 E/ML FLEXPEN
     Route: 058
     Dates: start: 20130307

REACTIONS (2)
  - Hypoglycaemia [Fatal]
  - Coma [Fatal]

NARRATIVE: CASE EVENT DATE: 20180607
